FAERS Safety Report 14186288 (Version 3)
Quarter: 2019Q1

REPORT INFORMATION
  Report Type: Spontaneous
  Country: US (occurrence: US)
  Receive Date: 20171114
  Receipt Date: 20190213
  Transmission Date: 20190417
  Serious: No
  Sender: FDA-Public Use
  Company Number: US-ASTRAZENECA-2017SF15451

PATIENT
  Age: 24378 Day
  Sex: Female

DRUGS (2)
  1. TUDORZA [Suspect]
     Active Substance: ACLIDINIUM BROMIDE
     Indication: CHRONIC OBSTRUCTIVE PULMONARY DISEASE
     Route: 055
     Dates: start: 2016
  2. SYMBICORT [Suspect]
     Active Substance: BUDESONIDE\FORMOTEROL FUMARATE DIHYDRATE
     Indication: CHRONIC OBSTRUCTIVE PULMONARY DISEASE
     Dosage: 2PUFFS ,TWO TIMES A DAY
     Route: 055

REACTIONS (12)
  - Weight increased [Unknown]
  - Bronchitis [Recovering/Resolving]
  - Device malfunction [Unknown]
  - Device failure [Unknown]
  - Weight decreased [Unknown]
  - Osteoporosis [Not Recovered/Not Resolved]
  - Insomnia [Not Recovered/Not Resolved]
  - Body height decreased [Not Recovered/Not Resolved]
  - Product dose omission [Unknown]
  - Anxiety [Unknown]
  - Product quality issue [Unknown]
  - Intentional product misuse [Unknown]

NARRATIVE: CASE EVENT DATE: 20171109
